FAERS Safety Report 9735485 (Version 2)
Quarter: 2013Q4

REPORT INFORMATION
  Report Type: Spontaneous
  Country: US (occurrence: US)
  Receive Date: 20131206
  Receipt Date: 20131206
  Transmission Date: 20140711
  Serious: No
  Sender: FDA-Public Use
  Company Number: US-GILEAD-2009-0023343

PATIENT
  Sex: Female

DRUGS (16)
  1. LETAIRIS [Suspect]
     Indication: PULMONARY ARTERIAL HYPERTENSION
     Route: 048
     Dates: start: 20090626, end: 20090826
  2. LASIX [Concomitant]
  3. CYMBALTA [Concomitant]
  4. JANUVIA [Concomitant]
  5. PEPCID [Concomitant]
  6. PREDNISONE [Concomitant]
  7. LOVASTATIN [Concomitant]
  8. LISINOPRIL [Concomitant]
  9. METOLAZONE [Concomitant]
  10. LEVEMIR FLEXPEN [Concomitant]
  11. FENTANYL [Concomitant]
  12. ALBUTEROL SULFATE [Concomitant]
  13. HYDROCODONE-APAP [Concomitant]
  14. GLIPIZIDE [Concomitant]
  15. POTASSIUM CHLORIDE [Concomitant]
  16. METOPROLOL TARTRATE [Concomitant]

REACTIONS (3)
  - Dyspnoea [Recovered/Resolved]
  - Swelling [Recovered/Resolved]
  - Oedema [Recovered/Resolved]
